FAERS Safety Report 6271802-4 (Version None)
Quarter: 2009Q3

REPORT INFORMATION
  Report Type: 
  Country: None (occurrence: None)
  Receive Date: 20090715
  Receipt Date: 20090629
  Transmission Date: 20100115
  Serious: Yes (Hospitalization)
  Sender: FDA-Public Use
  Company Number: 8048163

PATIENT
  Age: 45 Year
  Sex: Male
  Weight: 80 kg

DRUGS (7)
  1. CDP870 [Suspect]
     Indication: CROHN'S DISEASE
     Dosage: SC
     Route: 058
  2. XANAX [Concomitant]
  3. CARAFATE [Concomitant]
  4. ATACAND [Concomitant]
  5. ZOLOFT [Concomitant]
  6. FOLIC ACID [Concomitant]
  7. REMERON [Concomitant]

REACTIONS (4)
  - BLOOD PRESSURE DIASTOLIC DECREASED [None]
  - COLITIS [None]
  - MYALGIA [None]
  - SEPSIS [None]
